FAERS Safety Report 6840521-5 (Version None)
Quarter: 2010Q3

REPORT INFORMATION
  Report Type: 
  Country: None (occurrence: None)
  Receive Date: 20100714
  Receipt Date: 20100707
  Transmission Date: 20110219
  Serious: Yes (Hospitalization)
  Sender: FDA-Public Use
  Company Number: A0869766A

PATIENT
  Age: 58 Year
  Sex: Female

DRUGS (2)
  1. AVANDIA [Suspect]
     Dosage: 4MG TWICE PER DAY
     Route: 048
     Dates: start: 20031212, end: 20050801
  2. AVANDAMET [Suspect]
     Route: 048
     Dates: start: 20050801, end: 20060801

REACTIONS (1)
  - MYOCARDIAL INFARCTION [None]
